FAERS Safety Report 7940196-8 (Version None)
Quarter: 2011Q4

REPORT INFORMATION
  Report Type: 
  Country: None (occurrence: None)
  Receive Date: 20111126
  Receipt Date: 20110915
  Transmission Date: 20120403
  Serious: No
  Sender: FDA-Public Use
  Company Number: US-BAYER-2011-091021

PATIENT
  Sex: Male

DRUGS (2)
  1. ALEVE (CAPLET) [Suspect]
     Indication: PAIN IN EXTREMITY
     Dosage: 3 DF, ONCE
     Dates: start: 20110915
  2. BENADRYL [Suspect]
     Dosage: UNK

REACTIONS (1)
  - PAIN IN EXTREMITY [None]
